FAERS Safety Report 15118911 (Version 1)
Quarter: 2018Q3

REPORT INFORMATION
  Report Type: Spontaneous
  Country: DE (occurrence: DE)
  Receive Date: 20180709
  Receipt Date: 20180709
  Transmission Date: 20181010
  Serious: Yes (Hospitalization, Other)
  Sender: FDA-Public Use
  Company Number: DE-CONCORDIA PHARMACEUTICALS INC.-E2B_00013318

PATIENT
  Sex: Female
  Weight: 38 kg

DRUGS (1)
  1. DIGOXIN. [Suspect]
     Active Substance: DIGOXIN
     Indication: CARDIAC FAILURE
     Dosage: 0.1 OT, UNK
     Route: 065

REACTIONS (5)
  - Syncope [Unknown]
  - Hypertensive crisis [Unknown]
  - Accidental overdose [Unknown]
  - Weight decreased [Unknown]
  - Fall [Unknown]
